FAERS Safety Report 5537470-1 (Version None)
Quarter: 2007Q4

REPORT INFORMATION
  Report Type: 
  Country: None (occurrence: None)
  Receive Date: 20071207
  Receipt Date: 20071128
  Transmission Date: 20080405
  Serious: Yes (Other)
  Sender: FDA-Public Use
  Company Number: US-ELI_LILLY_AND_COMPANY-US200709002092

PATIENT
  Age: 12 Year
  Sex: Male

DRUGS (3)
  1. HUMATROPE [Suspect]
     Indication: GROWTH HORMONE DEFICIENCY
     Dosage: UNK, UNKNOWN
     Dates: start: 20050501, end: 20051001
  2. HUMATROPE [Suspect]
     Dosage: UNK, UNKNOWN
     Dates: start: 20070801
  3. SYNTHROID [Concomitant]
     Indication: HYPOTHYROIDISM
     Dosage: 37.5 UG, DAILY (1/D)
     Route: 048
     Dates: start: 20050501

REACTIONS (2)
  - INJECTION SITE BRUISING [None]
  - MYELODYSPLASTIC SYNDROME [None]
